FAERS Safety Report 6906641-1 (Version None)
Quarter: 2010Q3

REPORT INFORMATION
  Report Type: 
  Country: None (occurrence: None)
  Receive Date: 20100708
  Receipt Date: 20090723
  Transmission Date: 20110219
  Serious: Yes (Other)
  Sender: FDA-Public Use
  Company Number: 2008081809

PATIENT
  Age: 59 Year
  Sex: Female
  Weight: 99.8 kg

DRUGS (2)
  1. CHANTIX [Suspect]
     Indication: SMOKING CESSATION THERAPY
     Dosage: 1 MG, 2X/DAY
     Dates: start: 20080904
  2. CELEBREX [Concomitant]

REACTIONS (11)
  - ABNORMAL DREAMS [None]
  - DENTAL OPERATION [None]
  - DEPRESSION [None]
  - DRUG INEFFECTIVE [None]
  - FRUSTRATION [None]
  - HYPERSENSITIVITY [None]
  - PRURITUS [None]
  - RASH [None]
  - STRESS [None]
  - SUICIDAL IDEATION [None]
  - URTICARIA [None]
